FAERS Safety Report 15006488 (Version 2)
Quarter: 2020Q2

REPORT INFORMATION
  Report Type: Report from Study
  Country: US (occurrence: US)
  Receive Date: 20180613
  Receipt Date: 20200604
  Transmission Date: 20200713
  Serious: No
  Sender: FDA-Public Use
  Company Number: US-US WORLDMEDS, LLC-USW201707-001035

PATIENT
  Age: 73 Year
  Sex: Female
  Weight: 77.11 kg

DRUGS (16)
  1. APOKYN [Suspect]
     Active Substance: APOMORPHINE HYDROCHLORIDE
     Indication: PARKINSON^S DISEASE
     Route: 058
     Dates: start: 20170707
  2. TIGAN [Concomitant]
     Active Substance: TRIMETHOBENZAMIDE HYDROCHLORIDE
     Indication: NAUSEA
     Dates: start: 20170714
  3. APOKYN [Suspect]
     Active Substance: APOMORPHINE HYDROCHLORIDE
     Dates: start: 20170717
  4. TIGAN [Concomitant]
     Active Substance: TRIMETHOBENZAMIDE HYDROCHLORIDE
     Dates: start: 20170915
  5. MELOXICAM. [Concomitant]
     Active Substance: MELOXICAM
     Indication: ARTHRITIS
  6. COREG [Concomitant]
     Active Substance: CARVEDILOL
     Indication: HYPERTENSION
  7. APOKYN [Suspect]
     Active Substance: APOMORPHINE HYDROCHLORIDE
     Dates: start: 20170717
  8. PRAVASTATIN SODIUM. [Concomitant]
     Active Substance: PRAVASTATIN SODIUM
     Indication: BLOOD CHOLESTEROL INCREASED
  9. ELIQUIS [Concomitant]
     Active Substance: APIXABAN
  10. NEXIUM [Concomitant]
     Active Substance: ESOMEPRAZOLE MAGNESIUM
     Indication: GASTROOESOPHAGEAL REFLUX DISEASE
  11. ZANTAC [Concomitant]
     Active Substance: RANITIDINE HYDROCHLORIDE
  12. GABAPENTIN. [Concomitant]
     Active Substance: GABAPENTIN
  13. IBANDRONATE SODIUM. [Concomitant]
     Active Substance: IBANDRONATE SODIUM
     Indication: BONE PAIN
  14. RYTARY [Concomitant]
     Active Substance: CARBIDOPA\LEVODOPA
     Indication: PARKINSON^S DISEASE
  15. LOSARTAN POTASSIUM. [Concomitant]
     Active Substance: LOSARTAN POTASSIUM
  16. IBANDRONATE SODIUM. [Concomitant]
     Active Substance: IBANDRONATE SODIUM

REACTIONS (7)
  - Orthostatic hypotension [Unknown]
  - Nausea [Unknown]
  - Feeling abnormal [Unknown]
  - Yawning [Recovered/Resolved]
  - Dizziness [Recovered/Resolved]
  - Somnolence [Recovered/Resolved]
  - Vomiting [Unknown]

NARRATIVE: CASE EVENT DATE: 20170707
